FAERS Safety Report 6707288-2 (Version None)
Quarter: 2010Q2

REPORT INFORMATION
  Report Type: 
  Country: None (occurrence: None)
  Receive Date: 20100503
  Receipt Date: 20091026
  Transmission Date: 20101027
  Serious: No
  Sender: FDA-Public Use
  Company Number: US-ASTRAZENECA-2009SE22581

PATIENT
  Age: 38 Year
  Sex: Female
  Weight: 74.4 kg

DRUGS (8)
  1. NEXIUM [Suspect]
     Indication: GASTROOESOPHAGEAL REFLUX DISEASE
     Route: 048
     Dates: start: 20090801, end: 20090901
  2. ASPIRIN [Concomitant]
  3. DIAZEPAM [Concomitant]
  4. FLORINEF [Concomitant]
  5. KLONOPIN [Concomitant]
  6. PHENERGAN [Concomitant]
  7. CELEBREX [Concomitant]
  8. FIORICET [Concomitant]

REACTIONS (6)
  - DIARRHOEA [None]
  - DIZZINESS [None]
  - HEADACHE [None]
  - INFLUENZA LIKE ILLNESS [None]
  - INSOMNIA [None]
  - NIGHTMARE [None]
